FAERS Safety Report 7800086-8 (Version None)
Quarter: 2011Q4

REPORT INFORMATION
  Report Type: 
  Country: None (occurrence: None)
  Receive Date: 20111006
  Receipt Date: 20110920
  Transmission Date: 20120403
  Serious: Yes (Hospitalization)
  Sender: FDA-Public Use
  Company Number: FR-ASTRAZENECA-2011SE56423

PATIENT
  Age: 81 Year
  Sex: Female

DRUGS (21)
  1. GLUCOPHAGE [Suspect]
     Route: 048
     Dates: end: 20110822
  2. PREVISCAN [Suspect]
     Route: 048
     Dates: start: 20110824
  3. ZOLPIDEM [Suspect]
     Route: 048
     Dates: start: 20110706, end: 20110822
  4. ALUMINUM HYDROXIDE AND MAGNESIUM TRISILICATE [Suspect]
     Route: 048
     Dates: start: 20110816, end: 20110822
  5. METOPROLOL SUCCINATE [Concomitant]
     Route: 048
  6. MONOPLUS [Suspect]
     Dosage: 20 MG/12.5 MG, 1 DF DAILY
     Route: 048
     Dates: end: 20110822
  7. FLECTOR [Suspect]
     Route: 061
     Dates: start: 20110608, end: 20110822
  8. LANSOPRAZOLE [Suspect]
     Route: 048
     Dates: start: 20110706, end: 20110822
  9. PREVISCAN [Suspect]
     Route: 048
     Dates: end: 20110822
  10. DIGOXIN [Suspect]
     Dosage: 0.25 MG SIX DAYS PER WEEK
     Route: 048
     Dates: end: 20110822
  11. CRESTOR [Suspect]
     Route: 048
     Dates: end: 20110822
  12. ONGLYZA [Suspect]
     Route: 048
     Dates: start: 20110706, end: 20110822
  13. FUROSEMIDE [Suspect]
     Route: 048
     Dates: end: 20110822
  14. PIASCLEDINE [Suspect]
     Route: 048
     Dates: end: 20110822
  15. DOMPERIDONE [Suspect]
     Dosage: 10 MG, 1 TO 2 TABLETS THREE TIMES DAILY
     Route: 048
     Dates: start: 20110706, end: 20110822
  16. LEVOTHYROXINE SODIUM [Concomitant]
     Route: 048
  17. FUROSEMIDE [Suspect]
     Route: 048
     Dates: start: 20110828
  18. DIGOXIN [Suspect]
     Route: 048
     Dates: start: 20110830
  19. LOPERAMIDE HCL [Suspect]
     Route: 048
     Dates: start: 20110706, end: 20110822
  20. ACETAMINOPHEN AND CODEINE PHOSPHATE [Suspect]
     Route: 048
     Dates: start: 20110316, end: 20110822
  21. PHLOROGLUCINOL [Suspect]
     Route: 048
     Dates: start: 20110816, end: 20110822

REACTIONS (6)
  - RENAL FAILURE [None]
  - GENERAL PHYSICAL HEALTH DETERIORATION [None]
  - HYPERKALAEMIA [None]
  - DEHYDRATION [None]
  - DIARRHOEA [None]
  - METABOLIC ACIDOSIS [None]
